FAERS Safety Report 8658966 (Version 3)
Quarter: 2012Q4

REPORT INFORMATION
  Report Type: 
  Country: US (occurrence: US)
  Receive Date: 20120710
  Receipt Date: 20120927
  Transmission Date: 20130627
  Serious: No
  Sender: FDA-Public Use
  Company Number: US-ASTRAZENECA-2012SE42760

PATIENT
  Age: 74 Year
  Sex: Male

DRUGS (6)
  1. CRESTOR [Suspect]
     Indication: BLOOD CHOLESTEROL ABNORMAL
     Route: 048
  2. PRIMIDONE [Suspect]
     Indication: TREMOR
     Route: 048
  3. SIMVASTATIN [Concomitant]
  4. ATENOLOL [Concomitant]
     Indication: BLOOD PRESSURE ABNORMAL
  5. TERAZOSIN [Concomitant]
     Indication: PROSTATE CANCER
  6. ASPIRIN [Concomitant]

REACTIONS (2)
  - Tremor [Unknown]
  - Drug ineffective [Unknown]
